FAERS Safety Report 8168847-6 (Version None)
Quarter: 2012Q1

REPORT INFORMATION
  Report Type: 
  Country: None (occurrence: None)
  Receive Date: 20120227
  Receipt Date: 20120214
  Transmission Date: 20120608
  Serious: Yes (Congenital Anomaly)
  Sender: FDA-Public Use
  Company Number: GB-MYLANLABS-2012S1003295

PATIENT
  Sex: Female

DRUGS (5)
  1. METOCLOPRAMIDE [Concomitant]
     Route: 064
     Dates: end: 20110314
  2. MORPHINE SULFATE [Concomitant]
     Route: 064
     Dates: start: 20111014
  3. GABAPENTIN [Suspect]
     Route: 064
     Dates: end: 20110314
  4. DULOXETIME HYDROCHLORIDE [Concomitant]
     Route: 064
     Dates: end: 20110314
  5. TOPIRAMATE [Concomitant]
     Route: 064
     Dates: start: 20110217, end: 20110222

REACTIONS (5)
  - FOETAL MONITORING ABNORMAL [None]
  - HAEMANGIOMA OF SKIN [None]
  - MATERNAL EXPOSURE TIMING UNSPECIFIED [None]
  - CAESAREAN SECTION [None]
  - MATERNAL DRUGS AFFECTING FOETUS [None]
